FAERS Safety Report 18412100 (Version 2)
Quarter: 2020Q4

REPORT INFORMATION
  Report Type: Spontaneous
  Country: US (occurrence: US)
  Receive Date: 20201021
  Receipt Date: 20201023
  Transmission Date: 20210114
  Serious: No
  Sender: FDA-Public Use
  Company Number: US-TEVA-2020-US-1840641

PATIENT
  Age: 39 Year
  Sex: Female

DRUGS (1)
  1. ALPRAZOLAM ACTAVIS [Suspect]
     Active Substance: ALPRAZOLAM
     Indication: ANXIETY
     Dosage: 00228-2039-10
     Route: 065

REACTIONS (1)
  - Drug ineffective [Unknown]
